FAERS Safety Report 5492841-7 (Version None)
Quarter: 2007Q4

REPORT INFORMATION
  Report Type: 
  Country: None (occurrence: None)
  Receive Date: 20071023
  Receipt Date: 20060914
  Transmission Date: 20080405
  Serious: No
  Sender: FDA-Public Use
  Company Number: US-BRISTOL-MYERS SQUIBB COMPANY-13524962

PATIENT
  Age: 52 Year
  Sex: Male
  Weight: 70 kg

DRUGS (9)
  1. BUSPAR [Suspect]
     Indication: PANIC ATTACK
     Dates: start: 20060801
  2. BUSPAR [Suspect]
     Indication: ANXIETY
     Dates: start: 20060801
  3. LUNESTA [Concomitant]
     Indication: INSOMNIA
     Dosage: DOSAGE: LUNESTA 3MG BEGINNING IN FEBRUARY 06-9/13/06
     Dates: start: 20060201, end: 20060913
  4. LUNESTA [Concomitant]
     Dates: start: 20060101, end: 20060101
  5. PAXIL [Concomitant]
     Dates: start: 20060801
  6. DIOVAN HCT [Concomitant]
  7. ALTACE [Concomitant]
  8. ZYRTEC [Concomitant]
  9. AMBIEN [Concomitant]
     Indication: INSOMNIA
     Dates: end: 20060901

REACTIONS (4)
  - ANXIETY [None]
  - INSOMNIA [None]
  - PANIC ATTACK [None]
  - TINNITUS [None]
